FAERS Safety Report 14618613 (Version 1)
Quarter: 2018Q1

REPORT INFORMATION
  Report Type: Other
  Country: NL (occurrence: NL)
  Receive Date: 20180309
  Receipt Date: 20180309
  Transmission Date: 20180509
  Serious: Yes (Hospitalization)
  Sender: FDA-Public Use
  Company Number: NL-CELLTRION INC.-2018NL018361

PATIENT

DRUGS (2)
  1. REMSIMA [Suspect]
     Active Substance: INFLIXIMAB
     Dosage: 1 DF (1 INFUSION), EVERY 8 WEEKS
     Route: 065
     Dates: start: 20180211, end: 20180211
  2. REMSIMA [Suspect]
     Active Substance: INFLIXIMAB
     Indication: CROHN^S DISEASE
     Dosage: 1 DF (1 INFUSION), EVERY 8 WEEKS
     Route: 065
     Dates: start: 20171103, end: 20171103

REACTIONS (2)
  - Breast tenderness [Unknown]
  - Breast cancer [Unknown]

NARRATIVE: CASE EVENT DATE: 20180123
